FAERS Safety Report 12756370 (Version 1)
Quarter: 2016Q3

REPORT INFORMATION
  Report Type: Report from Study
  Country: ZA (occurrence: ZA)
  Receive Date: 20160916
  Receipt Date: 20160916
  Transmission Date: 20161109
  Serious: Yes (Death, Hospitalization, Other)
  Sender: FDA-Public Use
  Company Number: ZA-GILEAD-2016-0232495

PATIENT
  Age: 46 Year
  Sex: Female

DRUGS (1)
  1. EFAVIRENZ/EMTRICITABINE/TENOFOVIR DISOPROXIL FUMARATE [Suspect]
     Active Substance: EFAVIRENZ\EMTRICITABINE\TENOFOVIR DISOPROXIL FUMARATE
     Indication: HIV INFECTION
     Dosage: 1 UNK, UNK
     Route: 048
     Dates: start: 20120628

REACTIONS (4)
  - Confusional state [Fatal]
  - Pulmonary tuberculosis [Fatal]
  - Pneumonia [Fatal]
  - Peptic ulcer [Fatal]

NARRATIVE: CASE EVENT DATE: 20130501
